FAERS Safety Report 10429657 (Version 2)
Quarter: 2014Q4

REPORT INFORMATION
  Report Type: Spontaneous
  Country: JP (occurrence: JP)
  Receive Date: 20140904
  Receipt Date: 20141009
  Transmission Date: 20150528
  Serious: Yes (Death, Life-Threatening)
  Sender: FDA-Public Use
  Company Number: JP-NOVOPROD-420532

PATIENT
  Age: 88 Year
  Sex: Male

DRUGS (3)
  1. GLUCAGON G NOVO [Suspect]
     Active Substance: GLUCAGON
     Indication: ENDOSCOPY LARGE BOWEL
     Dosage: 1 DF, QD
     Route: 042
     Dates: start: 20140821, end: 20140821
  2. SOLDEM 3A [Concomitant]
     Active Substance: CARBOHYDRATES\POTASSIUM CHLORIDE\SODIUM CHLORIDE\SODIUM LACTATE
     Indication: LOWER GASTROINTESTINAL HAEMORRHAGE
     Dosage: 1000 ML, QD
     Route: 042
     Dates: start: 20140819, end: 20140825
  3. CARBAZOCHROME                      /00056903/ [Concomitant]
     Indication: LOWER GASTROINTESTINAL HAEMORRHAGE
     Dosage: 100 MG, QD
     Route: 042
     Dates: start: 20140819, end: 20140825

REACTIONS (2)
  - Anaphylactic shock [Recovered/Resolved]
  - Circulatory collapse [Fatal]

NARRATIVE: CASE EVENT DATE: 201408
